FAERS Safety Report 12826175 (Version 1)
Quarter: 2016Q4

REPORT INFORMATION
  Report Type: Spontaneous
  Country: US (occurrence: US)
  Receive Date: 20161006
  Receipt Date: 20161006
  Transmission Date: 20170207
  Serious: No
  Sender: FDA-Public Use
  Company Number: US-JAZZ-2016-US-012507

PATIENT
  Sex: Female

DRUGS (27)
  1. XYREM [Suspect]
     Active Substance: SODIUM OXYBATE
     Indication: NARCOLEPSY
     Dosage: 2.25 G, BID
     Route: 048
     Dates: start: 201210, end: 201210
  2. BUPROPION HCL [Concomitant]
     Active Substance: BUPROPION HYDROCHLORIDE
  3. LIPITOR [Concomitant]
     Active Substance: ATORVASTATIN CALCIUM
  4. XYREM [Suspect]
     Active Substance: SODIUM OXYBATE
     Dosage: DOSE ADJUSTMENTS
     Route: 048
     Dates: start: 201210, end: 201210
  5. XYREM [Suspect]
     Active Substance: SODIUM OXYBATE
     Dosage: 4.5 G, BID
     Route: 048
     Dates: start: 201210, end: 2012
  6. XYREM [Suspect]
     Active Substance: SODIUM OXYBATE
     Dosage: 4.5 G, BID
     Route: 048
     Dates: start: 20160629
  7. TRAZODONE [Concomitant]
     Active Substance: TRAZODONE HYDROCHLORIDE
  8. RITALIN [Concomitant]
     Active Substance: METHYLPHENIDATE HYDROCHLORIDE
  9. ENALAPRIL + HIDROCLOROTIAZIDA [Concomitant]
  10. LOSARTAN POTASSIUM. [Concomitant]
     Active Substance: LOSARTAN POTASSIUM
  11. PROVIGIL [Concomitant]
     Active Substance: MODAFINIL
  12. PRAVASTATIN SODIUM. [Concomitant]
     Active Substance: PRAVASTATIN SODIUM
  13. TOPAMAX [Concomitant]
     Active Substance: TOPIRAMATE
  14. BENADRYL ALLERGY [Concomitant]
     Active Substance: DIPHENHYDRAMINE HYDROCHLORIDE
  15. PROZAC [Concomitant]
     Active Substance: FLUOXETINE HYDROCHLORIDE
  16. MIRTAZAPINE. [Concomitant]
     Active Substance: MIRTAZAPINE
  17. NEXIUM [Concomitant]
     Active Substance: ESOMEPRAZOLE MAGNESIUM
  18. DULOXETINE HCL [Concomitant]
     Active Substance: DULOXETINE HYDROCHLORIDE
  19. GLIPIZIDE. [Concomitant]
     Active Substance: GLIPIZIDE
  20. FLUOXETINE HCL [Concomitant]
     Active Substance: FLUOXETINE HYDROCHLORIDE
  21. RANITIDINE HCL [Concomitant]
     Active Substance: RANITIDINE HYDROCHLORIDE
  22. KLONOPIN [Concomitant]
     Active Substance: CLONAZEPAM
  23. EFFEXOR [Concomitant]
     Active Substance: VENLAFAXINE HYDROCHLORIDE
  24. ZYPREXA [Concomitant]
     Active Substance: OLANZAPINE
  25. SYNTHROID [Concomitant]
     Active Substance: LEVOTHYROXINE SODIUM
  26. FUROSEMIDE. [Concomitant]
     Active Substance: FUROSEMIDE
  27. PHENTERMINE. [Concomitant]
     Active Substance: PHENTERMINE

REACTIONS (2)
  - Dizziness [Not Recovered/Not Resolved]
  - Abdominal discomfort [Not Recovered/Not Resolved]
